FAERS Safety Report 11644395 (Version 1)
Quarter: 2015Q4

REPORT INFORMATION
  Report Type: Spontaneous
  Country: US (occurrence: US)
  Receive Date: 20151020
  Receipt Date: 20151020
  Transmission Date: 20160304
  Serious: Yes (Hospitalization, Other)
  Sender: FDA-Public Use
  Company Number: US-ALEXION PHARMACEUTICALS INC-A201304237

PATIENT
  Age: 46 Year
  Sex: Male

DRUGS (5)
  1. SOLIRIS [Suspect]
     Active Substance: ECULIZUMAB
     Indication: OFF LABEL USE
  2. CASPOFUNGIN [Concomitant]
     Active Substance: CASPOFUNGIN
     Indication: CANDIDA INFECTION
     Route: 065
  3. VALGANCICLOVIR [Concomitant]
     Active Substance: VALGANCICLOVIR
     Indication: CYTOMEGALOVIRUS INFECTION
     Route: 065
  4. DOBUTAMIN [Concomitant]
     Indication: CANDIDA INFECTION
     Route: 065
  5. SOLIRIS [Suspect]
     Active Substance: ECULIZUMAB
     Indication: MALIGNANT ATROPHIC PAPULOSIS
     Dosage: UNK UNK, Q2W
     Route: 042
     Dates: start: 200910

REACTIONS (10)
  - Ascites [Unknown]
  - Small intestinal obstruction [Unknown]
  - Pericardial effusion [Unknown]
  - Skin lesion [Unknown]
  - Vascular injury [Unknown]
  - Peritonitis [Unknown]
  - Gastrointestinal disorder [Unknown]
  - Large intestine perforation [Unknown]
  - Gastrointestinal disorder [Not Recovered/Not Resolved]
  - Off label use [Unknown]

NARRATIVE: CASE EVENT DATE: 201002
